FAERS Safety Report 22524537 (Version 1)
Quarter: 2023Q2

REPORT INFORMATION
  Report Type: Spontaneous
  Country: KR (occurrence: KR)
  Receive Date: 20230606
  Receipt Date: 20230606
  Transmission Date: 20230721
  Serious: Yes (Hospitalization)
  Sender: FDA-Public Use
  Company Number: KR-ORGANON-O2306KOR000095

PATIENT
  Age: 68 Year
  Sex: Female

DRUGS (12)
  1. HYDROCHLOROTHIAZIDE\LOSARTAN POTASSIUM [Suspect]
     Active Substance: HYDROCHLOROTHIAZIDE\LOSARTAN POTASSIUM
     Dosage: UNK, ONCE A DAY
     Route: 048
     Dates: start: 20180323
  2. PRAVASTATIN SODIUM [Suspect]
     Active Substance: PRAVASTATIN SODIUM
     Dosage: 40 MILLIGRAM, ONCE A DAY
     Route: 048
     Dates: start: 20180816, end: 20190202
  3. PREDNISOLONE [Concomitant]
     Active Substance: PREDNISOLONE
     Dosage: 5 MILLIGRAM, QD
     Route: 048
     Dates: start: 20180406
  4. S-PANTOPRAZOLE SODIUM TRIHYDRATE [Concomitant]
     Dosage: UNK, ONCE A DAY
     Route: 048
     Dates: start: 20181109
  5. MONTELUKAST SODIUM [Concomitant]
     Active Substance: MONTELUKAST SODIUM
     Dosage: UNK, ONCE A DAY
     Route: 048
     Dates: start: 20180506
  6. DIACEREIN [Concomitant]
     Active Substance: DIACEREIN
     Dosage: UNK, Q12H (0.5 DAY)
     Route: 048
     Dates: start: 20180323
  7. CALCIUM CARBONATE\CHOLECALCIFEROL [Concomitant]
     Active Substance: CALCIUM CARBONATE\CHOLECALCIFEROL
     Dosage: UNK, ONCE A DAY
     Route: 048
     Dates: start: 20180323
  8. PREGABALIN [Concomitant]
     Active Substance: PREGABALIN
     Dosage: UNK, Q12H (0.5 DAY)
     Route: 048
     Dates: start: 20180323
  9. ACETAMINOPHEN [Concomitant]
     Active Substance: ACETAMINOPHEN
     Dosage: UNK, Q12H (0.5 DAY)
     Route: 048
     Dates: start: 20180323
  10. ACETAMINOPHEN\TRAMADOL HYDROCHLORIDE [Concomitant]
     Active Substance: ACETAMINOPHEN\TRAMADOL HYDROCHLORIDE
     Dosage: UNK, Q12H (0.5 DAY)
     Route: 048
     Dates: start: 20180323
  11. ESOMEPRAZOLE MAGNESIUM [Concomitant]
     Active Substance: ESOMEPRAZOLE MAGNESIUM
     Dosage: UNK, QD
     Route: 048
     Dates: start: 20180323
  12. FAMOTIDINE [Concomitant]
     Active Substance: FAMOTIDINE
     Dosage: UNK
     Route: 048
     Dates: start: 20180323

REACTIONS (2)
  - Metabolic encephalopathy [Recovered/Resolved]
  - Myocardial infarction [Recovered/Resolved]

NARRATIVE: CASE EVENT DATE: 20181217
